FAERS Safety Report 5400065-4 (Version None)
Quarter: 2007Q3

REPORT INFORMATION
  Report Type: 
  Country: None (occurrence: None)
  Receive Date: 20070730
  Receipt Date: 20070717
  Transmission Date: 20080115
  Serious: Yes (Hospitalization, Other)
  Sender: FDA-Public Use
  Company Number: GB-NOVOPROD-264379

PATIENT
  Sex: Female
  Weight: 62.3 kg

DRUGS (7)
  1. LEVEMIR [Suspect]
     Indication: DIABETES MELLITUS
     Dosage: 24 IU, QD
     Route: 058
     Dates: start: 20040817
  2. RAMIPRIL [Concomitant]
     Dosage: 10 MG, QD
     Route: 048
     Dates: start: 20020901
  3. METFORMIN HCL [Concomitant]
     Dosage: 1500 MG, QD
     Route: 048
     Dates: start: 19990527
  4. ASPIRINE                           /00002701/ [Concomitant]
     Dosage: 75 MG, QD
     Route: 048
     Dates: start: 20070417
  5. LEVOTHYROXINE SODIUM [Concomitant]
     Dosage: 100 UG, QD
     Route: 048
     Dates: start: 19930730
  6. ATORVASTATIN CALCIUM [Concomitant]
     Dosage: 10 MG, QD
     Route: 048
     Dates: start: 20051201
  7. BENDROFLUAZIDE [Concomitant]
     Dosage: 2.5 MG, QD
     Route: 048
     Dates: start: 20070301

REACTIONS (2)
  - HAEMATOMA [None]
  - SYNCOPE [None]
